FAERS Safety Report 5256045-5 (Version None)
Quarter: 2007Q1

REPORT INFORMATION
  Report Type: 
  Country: None (occurrence: None)
  Receive Date: 20070306
  Receipt Date: 20070221
  Transmission Date: 20070707
  Serious: Yes (Hospitalization)
  Sender: FDA-Public Use
  Company Number: PHRM2007FR00661

PATIENT
  Age: 10 Year
  Sex: Male

DRUGS (5)
  1. RITALIN [Suspect]
     Indication: ATTENTION DEFICIT/HYPERACTIVITY DISORDER
     Dosage: 10+15 MG/DAY
     Route: 048
     Dates: start: 20030101
  2. ADVIL [Suspect]
     Route: 048
  3. ANTIBIOTICS [Suspect]
     Route: 048
  4. VALPROIC ACID [Concomitant]
     Indication: PETIT MAL EPILEPSY
     Route: 048
  5. SIBELIUM [Concomitant]
     Indication: MIGRAINE
     Route: 048

REACTIONS (6)
  - BLISTER [None]
  - CONJUNCTIVITIS [None]
  - DRUG INEFFECTIVE [None]
  - PYREXIA [None]
  - STEVENS-JOHNSON SYNDROME [None]
  - STOMATITIS [None]
